FAERS Safety Report 14754492 (Version 1)
Quarter: 2018Q2

REPORT INFORMATION
  Report Type: Spontaneous
  Country: AT (occurrence: AT)
  Receive Date: 20180412
  Receipt Date: 20180412
  Transmission Date: 20180711
  Serious: Yes (Other)
  Sender: FDA-Public Use
  Company Number: AT-BAXTER-2018BAX010742

PATIENT
  Age: 72 Year
  Sex: Female

DRUGS (2)
  1. ENDOXAN ^BAXTER^ 1G TROCKENSTECHAMPULLE [Suspect]
     Active Substance: CYCLOPHOSPHAMIDE
     Indication: VASCULITIS
     Dosage: 6 CYCLES
     Route: 065
  2. RITUXIMAB. [Suspect]
     Active Substance: RITUXIMAB
     Indication: VASCULITIS
     Dosage: 6 CYCLES
     Route: 042

REACTIONS (4)
  - Cerebral microhaemorrhage [Unknown]
  - Haemorrhage [Unknown]
  - Intentional product use issue [Unknown]
  - Off label use [Unknown]
